FAERS Safety Report 5841640-2 (Version None)
Quarter: 2008Q3

REPORT INFORMATION
  Report Type: 
  Country: None (occurrence: None)
  Receive Date: 20080731
  Receipt Date: 20080626
  Transmission Date: 20090109
  Serious: No
  Sender: FDA-Public Use
  Company Number: US200803002290

PATIENT
  Age: 63 Year
  Sex: Female
  Weight: 88.9 kg

DRUGS (11)
  1. BYETTA [Suspect]
     Indication: TYPE 2 DIABETES MELLITUS
     Dosage: 5 UG, 2/D, SUBCUTANEOUS : 10 UG, 2/D, SUBCUTANEOUS : SUBCUTANEOUS
     Route: 058
     Dates: start: 20080308, end: 20080401
  2. BYETTA [Suspect]
     Indication: TYPE 2 DIABETES MELLITUS
     Dosage: 5 UG, 2/D, SUBCUTANEOUS : 10 UG, 2/D, SUBCUTANEOUS : SUBCUTANEOUS
     Route: 058
     Dates: start: 20080401
  3. BYETTA [Suspect]
  4. GLUCOTROL [Concomitant]
  5. GLUCOTROL XL [Concomitant]
  6. DRUG USED IN DIABETES [Concomitant]
  7. AVANDIA [Concomitant]
  8. ARTHROTEC [Concomitant]
  9. BONIVA [Concomitant]
  10. ACTONEL [Concomitant]
  11. CALCIUM D (ASCORBIC ACID, CALCIUM GLUCONATE, CALCIUM LACTATE, CALCIUM [Concomitant]

REACTIONS (9)
  - BLOOD GLUCOSE INCREASED [None]
  - CHOLECYSTITIS [None]
  - DRUG INEFFECTIVE [None]
  - INJECTION SITE HAEMATOMA [None]
  - INJECTION SITE PAIN [None]
  - INJECTION SITE PRURITUS [None]
  - INJECTION SITE RASH [None]
  - NAUSEA [None]
  - OESOPHAGEAL CANDIDIASIS [None]
